FAERS Safety Report 5692826-1 (Version None)
Quarter: 2008Q2

REPORT INFORMATION
  Report Type: 
  Country: None (occurrence: None)
  Receive Date: 20080401
  Receipt Date: 20080320
  Transmission Date: 20081010
  Serious: Yes (Death)
  Sender: FDA-Public Use
  Company Number: GXKR2008DE02847

PATIENT
  Age: 58 Year
  Sex: Male

DRUGS (12)
  1. DOXORUBICIN HCL [Suspect]
     Indication: CHRONIC LYMPHOCYTIC LEUKAEMIA
     Dosage: 25 MG/M2, 3 CYCLES IN TOTAL
     Dates: start: 20030101
  2. VINCRISTINE [Suspect]
     Indication: CHRONIC LYMPHOCYTIC LEUKAEMIA
     Dosage: 1 MG/M2, 3 CYCLES IN TOTAL
     Dates: start: 20030101
  3. PREDNISONE [Suspect]
     Indication: CHRONIC LYMPHOCYTIC LEUKAEMIA
     Dosage: 40 MG/M2, 3 CYCLES IN TOTAL
     Dates: start: 20030101
  4. CYCLOSPORINE [Suspect]
     Indication: PROPHYLAXIS AGAINST GRAFT VERSUS HOST DISEASE
     Dosage: 200-400 MG, QD
     Dates: start: 20040101
  5. PREDNISOLONE [Suspect]
     Indication: ACUTE GRAFT VERSUS HOST DISEASE
     Dosage: 50-80 MG, QD
     Dates: start: 20040101
  6. FLUDARABINE PHOSPHATE [Suspect]
     Indication: CHRONIC LYMPHOCYTIC LEUKAEMIA
     Dosage: 25 MG/M2, 6 CYCLES : 30 MG/M2
     Dates: start: 20020101
  7. FLUDARABINE PHOSPHATE [Suspect]
     Indication: CHRONIC LYMPHOCYTIC LEUKAEMIA
     Dosage: 25 MG/M2, 6 CYCLES : 30 MG/M2
     Dates: start: 20040101
  8. CYCLOPHOSPHAMIDE [Suspect]
     Indication: CHRONIC LYMPHOCYTIC LEUKAEMIA
     Dosage: 300 MG/M2, 3 CYCLES IN TOTAL
     Dates: start: 20030101
  9. ALEMTUZUMAB(ALEMTUZUMAB, CAMPATH-1H) [Suspect]
     Indication: CHRONIC LYMPHOCYTIC LEUKAEMIA
     Dosage: 30 MG, 20 APPLICATIONS IN TOTAL : 5, 10 20 MG
     Dates: start: 20040101
  10. ALEMTUZUMAB(ALEMTUZUMAB, CAMPATH-1H) [Suspect]
     Indication: CHRONIC LYMPHOCYTIC LEUKAEMIA
     Dosage: 30 MG, 20 APPLICATIONS IN TOTAL : 5, 10 20 MG
     Dates: start: 20040101
  11. BUSULFAN(BUSULFAN) [Suspect]
     Indication: CHRONIC LYMPHOCYTIC LEUKAEMIA
     Dosage: 1 MG/KG, QID
     Dates: start: 20040101
  12. TACROLIMUS [Suspect]
     Indication: PROPHYLAXIS AGAINST GRAFT VERSUS HOST DISEASE
     Dosage: 1 MG, BID
     Dates: start: 20040101

REACTIONS (17)
  - BLINDNESS [None]
  - CYTOMEGALOVIRUS INFECTION [None]
  - DEAFNESS [None]
  - DEMYELINATION [None]
  - DISORIENTATION [None]
  - GENERAL PHYSICAL HEALTH DETERIORATION [None]
  - GRAFT VERSUS HOST DISEASE [None]
  - HEMIANOPIA HOMONYMOUS [None]
  - INCONTINENCE [None]
  - JC VIRUS INFECTION [None]
  - MOOD ALTERED [None]
  - NO THERAPEUTIC RESPONSE [None]
  - PLEOCYTOSIS [None]
  - PROGRESSIVE MULTIFOCAL LEUKOENCEPHALOPATHY [None]
  - SOMNOLENCE [None]
  - TREMOR [None]
  - VERTIGO [None]
